FAERS Safety Report 23356238 (Version 1)
Quarter: 2024Q1

REPORT INFORMATION
  Report Type: Spontaneous
  Country: CN (occurrence: None)
  Receive Date: 20240102
  Receipt Date: 20240102
  Transmission Date: 20240410
  Serious: Yes (Hospitalization, Other)
  Sender: FDA-Public Use
  Company Number: 2023A295576

PATIENT
  Age: 40 Year
  Sex: Female
  Weight: 50 kg

DRUGS (9)
  1. BUDESONIDE [Suspect]
     Active Substance: BUDESONIDE
     Indication: Cough
     Route: 055
     Dates: start: 20231218, end: 20231218
  2. BUDESONIDE [Suspect]
     Active Substance: BUDESONIDE
     Indication: Productive cough
     Route: 055
     Dates: start: 20231218, end: 20231218
  3. BUDESONIDE [Suspect]
     Active Substance: BUDESONIDE
     Indication: Upper respiratory tract infection
     Route: 055
     Dates: start: 20231218, end: 20231218
  4. ACETYLCYSTEINE [Suspect]
     Active Substance: ACETYLCYSTEINE
     Indication: Cough
     Route: 055
     Dates: start: 20231218, end: 20231218
  5. ACETYLCYSTEINE [Suspect]
     Active Substance: ACETYLCYSTEINE
     Indication: Productive cough
     Route: 055
     Dates: start: 20231218, end: 20231218
  6. ACETYLCYSTEINE [Suspect]
     Active Substance: ACETYLCYSTEINE
     Indication: Upper respiratory tract infection
     Route: 055
     Dates: start: 20231218, end: 20231218
  7. STERILE WATER [Concomitant]
     Active Substance: WATER
     Indication: Upper respiratory tract infection
     Route: 055
     Dates: start: 20231218, end: 20231218
  8. STERILE WATER [Concomitant]
     Active Substance: WATER
     Indication: Cough
     Route: 055
     Dates: start: 20231218, end: 20231218
  9. STERILE WATER [Concomitant]
     Active Substance: WATER
     Indication: Productive cough
     Route: 055
     Dates: start: 20231218, end: 20231218

REACTIONS (4)
  - Nausea [Recovering/Resolving]
  - Asthenia [Recovering/Resolving]
  - Syncope [Recovering/Resolving]
  - Hypotension [Unknown]

NARRATIVE: CASE EVENT DATE: 20231218
